FAERS Safety Report 16067733 (Version 1)
Quarter: 2019Q2

REPORT INFORMATION
  Report Type: Spontaneous
  Country: US (occurrence: US)
  Receive Date: 20190313
  Receipt Date: 20190313
  Transmission Date: 20190711
  Serious: Yes (Other)
  Sender: FDA-Public Use
  Company Number: None

PATIENT
  Age: 67 Year
  Sex: Female
  Weight: 80.55 kg

DRUGS (8)
  1. CALCIUM [Concomitant]
     Active Substance: CALCIUM
  2. TRIAMTERENE HCTZ [Suspect]
     Active Substance: HYDROCHLOROTHIAZIDE\TRIAMTERENE
     Indication: HYPERTENSION
     Dosage: ?          QUANTITY:210 TABLET(S);?
     Route: 048
     Dates: start: 20181001
  3. GARLIC. [Concomitant]
     Active Substance: GARLIC
  4. VITAMIN B3 [Concomitant]
     Active Substance: NIACIN
  5. CINNAMON. [Concomitant]
     Active Substance: CINNAMON
  6. FISH OIL [Concomitant]
     Active Substance: FISH OIL
  7. VITAMIN B12 [Concomitant]
     Active Substance: CYANOCOBALAMIN
  8. POTASSIUM [Concomitant]
     Active Substance: POTASSIUM

REACTIONS (5)
  - Product substitution issue [None]
  - Blood electrolytes decreased [None]
  - Arthralgia [None]
  - Dehydration [None]
  - Pollakiuria [None]

NARRATIVE: CASE EVENT DATE: 20181001
